FAERS Safety Report 25842140 (Version 2)
Quarter: 2025Q4

REPORT INFORMATION
  Report Type: Spontaneous
  Country: US (occurrence: US)
  Receive Date: 20250924
  Receipt Date: 20251025
  Transmission Date: 20260117
  Serious: No
  Sender: JOHNSON AND JOHNSON
  Company Number: US-JNJFOC-20250926406

PATIENT
  Sex: Male

DRUGS (2)
  1. SPRAVATO [Suspect]
     Active Substance: ESKETAMINE
     Indication: Product used for unknown indication
  2. SPRAVATO [Suspect]
     Active Substance: ESKETAMINE
     Dates: start: 20250916, end: 20250916

REACTIONS (2)
  - Drug delivery system malfunction [Unknown]
  - Incorrect dose administered by device [Unknown]
